FAERS Safety Report 24228782 (Version 1)
Quarter: 2024Q3

REPORT INFORMATION
  Report Type: Spontaneous
  Country: US (occurrence: None)
  Receive Date: 20240819
  Receipt Date: 20240819
  Transmission Date: 20241016
  Serious: No
  Sender: Public
  Company Number: None

PATIENT
  Age: 44 Year
  Sex: Male
  Weight: 78.75 kg

DRUGS (1)
  1. VARDENAFIL [Suspect]
     Active Substance: VARDENAFIL HYDROCHLORIDE
     Indication: Erectile dysfunction
     Dosage: ORAL
     Route: 048
     Dates: start: 20240817, end: 20240818

REACTIONS (4)
  - Chills [None]
  - Headache [None]
  - Pyrexia [None]
  - Hyperhidrosis [None]

NARRATIVE: CASE EVENT DATE: 20240817
